FAERS Safety Report 8694938 (Version 2)
Quarter: 2013Q4

REPORT INFORMATION
  Report Type: Report from Study
  Country: US (occurrence: US)
  Receive Date: 20120731
  Receipt Date: 20131106
  Transmission Date: 20140711
  Serious: Yes (Other)
  Sender: FDA-Public Use
  Company Number: US-009507513-1207USA008513

PATIENT
  Age: 62 Year
  Sex: Male
  Weight: 86.17 kg

DRUGS (12)
  1. VICTRELIS [Suspect]
     Indication: HEPATITIS C
     Dosage: 800 MG, TID
     Route: 048
  2. CENTRUM (MINERALS (UNSPECIFIED) (+) VITAMINS (UNSPECIFIED)) [Concomitant]
     Dosage: 81 MG, UNK
  3. TAMSULOSIN HYDROCHLORIDE [Concomitant]
     Dosage: 0.4 MG, UNK
  4. LISINOPRIL [Concomitant]
     Dosage: 10 MG, UNK
  5. ATENOLOL [Concomitant]
     Dosage: 25 MG, UNK
  6. METFORMIN [Concomitant]
     Dosage: 50 MG, UNK
  7. ACTOS [Concomitant]
     Dosage: 30 MG, UNK
  8. JANUVIA [Concomitant]
     Dosage: 25 MG, UNK
  9. TRUVADA [Concomitant]
  10. ISENTRESS [Concomitant]
     Dosage: 400 MG, UNK
  11. RIBAPAK [Concomitant]
     Dosage: 600 MG, QD
  12. PEGASYS [Concomitant]
     Dosage: 180 MICROGRAM, QM

REACTIONS (4)
  - Convulsion [Unknown]
  - Foaming at mouth [Unknown]
  - Pain in jaw [Unknown]
  - Chest pain [Unknown]
